FAERS Safety Report 5411785-X (Version None)
Quarter: 2007Q3

REPORT INFORMATION
  Report Type: 
  Country: None (occurrence: None)
  Receive Date: 20070713
  Receipt Date: 20070319
  Transmission Date: 20080115
  Serious: No
  Sender: FDA-Public Use
  Company Number: 2007SP000965

PATIENT
  Age: 73 Year
  Sex: Female
  Weight: 90.7194 kg

DRUGS (9)
  1. LUNESTA [Suspect]
     Indication: INSOMNIA
     Dosage: 2 MG;HS;ORAL
     Route: 048
     Dates: start: 20070201
  2. ASPIRIN [Concomitant]
  3. FISH OIL [Concomitant]
  4. VITAMIN E [Concomitant]
  5. COREG [Concomitant]
  6. SERTRALINE [Concomitant]
  7. PIROXICAM [Concomitant]
  8. AMIDRINE [Concomitant]
  9. ISOSORBIDE DINITRATE [Concomitant]

REACTIONS (3)
  - DYSGEUSIA [None]
  - MIDDLE INSOMNIA [None]
  - SOMNOLENCE [None]
